FAERS Safety Report 17050883 (Version 5)
Quarter: 2021Q1

REPORT INFORMATION
  Report Type: Report from Study
  Country: MX (occurrence: MX)
  Receive Date: 20191120
  Receipt Date: 20210323
  Transmission Date: 20210419
  Serious: Yes (Hospitalization, Other)
  Sender: FDA-Public Use
  Company Number: MX-SA-2019SA314709

PATIENT
  Age: 31 Year
  Sex: Female

DRUGS (2)
  1. MAVENCLAD [Concomitant]
     Active Substance: CLADRIBINE
     Dosage: UNK
     Route: 065
     Dates: start: 20191105
  2. ALEMTUZUMAB [Suspect]
     Active Substance: ALEMTUZUMAB
     Indication: MULTIPLE SCLEROSIS
     Dosage: 5 DOSES (12MG/1.2ML)
     Route: 041
     Dates: start: 20180731

REACTIONS (4)
  - Immune thrombocytopenia [Recovered/Resolved]
  - Gingival bleeding [Not Recovered/Not Resolved]
  - Bleeding time prolonged [Recovered/Resolved]
  - Skin haemorrhage [Recovered/Resolved]

NARRATIVE: CASE EVENT DATE: 201906
